FAERS Safety Report 7030192-X (Version None)
Quarter: 2010Q4

REPORT INFORMATION
  Report Type: 
  Country: None (occurrence: None)
  Receive Date: 20101001
  Receipt Date: 20100817
  Transmission Date: 20110411
  Serious: Yes (Hospitalization)
  Sender: FDA-Public Use
  Company Number: A-US2010-39916

PATIENT
  Age: 72 Year
  Sex: Female

DRUGS (3)
  1. TRACLEER [Suspect]
     Indication: PULMONARY ARTERIAL HYPERTENSION
     Dosage: 62.5 MG,ORAL; 125 MG; 6.25 MG BID
     Route: 048
     Dates: start: 20100428, end: 20100527
  2. TRACLEER [Suspect]
     Indication: PULMONARY ARTERIAL HYPERTENSION
     Dosage: 62.5 MG,ORAL; 125 MG; 6.25 MG BID
     Route: 048
     Dates: start: 20100528, end: 20100802
  3. TRACLEER [Suspect]
     Indication: PULMONARY ARTERIAL HYPERTENSION
     Dosage: 62.5 MG,ORAL; 125 MG; 6.25 MG BID
     Route: 048
     Dates: start: 20100830

REACTIONS (2)
  - DYSPNOEA [None]
  - INSOMNIA [None]
